FAERS Safety Report 14243978 (Version 5)
Quarter: 2018Q1

REPORT INFORMATION
  Report Type: Spontaneous
  Country: RU (occurrence: RU)
  Receive Date: 20171201
  Receipt Date: 20180327
  Transmission Date: 20180508
  Serious: Yes (Hospitalization, Other)
  Sender: FDA-Public Use
  Company Number: RU-ASTRAZENECA-2017SF12869

PATIENT
  Age: 57 Year
  Sex: Male

DRUGS (9)
  1. CARDIKET [Concomitant]
     Active Substance: ISOSORBIDE DINITRATE
     Route: 048
     Dates: start: 20170622
  2. BRILINTA [Suspect]
     Active Substance: TICAGRELOR
     Indication: MYOCARDIAL INFARCTION
     Route: 048
     Dates: start: 20170622
  3. ROSUVASTATIN. [Suspect]
     Active Substance: ROSUVASTATIN
     Indication: ARTERIOSCLEROSIS
     Route: 048
  4. ROSUVASTATIN. [Suspect]
     Active Substance: ROSUVASTATIN
     Indication: ARTERIOSCLEROSIS
     Route: 048
     Dates: start: 20171105, end: 20171109
  5. ROSUVASTATIN. [Suspect]
     Active Substance: ROSUVASTATIN
     Indication: ARTERIOSCLEROSIS
     Route: 048
     Dates: start: 20170622
  6. VALSARTAN. [Concomitant]
     Active Substance: VALSARTAN
     Dates: start: 201604
  7. VEROSPIRON [Concomitant]
     Active Substance: SPIRONOLACTONE
     Dates: start: 201604
  8. ACECARDOL [Concomitant]
     Active Substance: ASPIRIN
     Dates: start: 201604
  9. INDAPAMIDE. [Concomitant]
     Active Substance: INDAPAMIDE
     Dates: start: 201604

REACTIONS (10)
  - Limb discomfort [Not Recovered/Not Resolved]
  - Dyspnoea [Not Recovered/Not Resolved]
  - Somnolence [Not Recovered/Not Resolved]
  - Chest pain [Not Recovered/Not Resolved]
  - Abdominal pain [Not Recovered/Not Resolved]
  - Back pain [Not Recovered/Not Resolved]
  - Renal disorder [Unknown]
  - Blood pressure increased [Not Recovered/Not Resolved]
  - Headache [Not Recovered/Not Resolved]
  - Asthenia [Not Recovered/Not Resolved]

NARRATIVE: CASE EVENT DATE: 20171010
